FAERS Safety Report 5148156-X (Version None)
Quarter: 2006Q4

REPORT INFORMATION
  Report Type: 
  Country: None (occurrence: None)
  Receive Date: 20061106
  Receipt Date: 20061023
  Transmission Date: 20070319
  Serious: Yes (Death)
  Sender: FDA-Public Use
  Company Number: POMP-10853

PATIENT
  Age: 9 Month
  Sex: Male
  Weight: 7.5 kg

DRUGS (3)
  1. MYOZYME [Suspect]
     Indication: GLYCOGEN STORAGE DISEASE TYPE II
     Dosage: 20 MG/KG ONCE IV
     Route: 042
     Dates: start: 20061017, end: 20061017
  2. CAPTOPRIL [Concomitant]
  3. FUROSEMIDE [Concomitant]

REACTIONS (9)
  - BRADYCARDIA [None]
  - CARDIAC ARREST [None]
  - CARDIAC FAILURE [None]
  - CONDITION AGGRAVATED [None]
  - HEART RATE INCREASED [None]
  - PNEUMONIA [None]
  - RESPIRATORY RATE INCREASED [None]
  - SHOCK [None]
  - VENTRICULAR FIBRILLATION [None]
